FAERS Safety Report 10217939 (Version 1)
Quarter: 2014Q2

REPORT INFORMATION
  Report Type: Spontaneous
  Country: US (occurrence: US)
  Receive Date: 20140605
  Receipt Date: 20140605
  Transmission Date: 20141212
  Serious: No
  Sender: FDA-Public Use
  Company Number: US-009507513-1405USA015272

PATIENT
  Age: 5 Year
  Sex: Male
  Weight: 22.68 kg

DRUGS (1)
  1. COPPERTONE WATER BABIES FOAMIN LOTION SPF-75+ [Suspect]
     Indication: PROPHYLAXIS
     Dosage: UNK, UNKNOWN
     Route: 061
     Dates: start: 20140523

REACTIONS (6)
  - Swelling face [Not Recovered/Not Resolved]
  - Eye swelling [Not Recovered/Not Resolved]
  - Erythema [Not Recovered/Not Resolved]
  - Skin warm [Not Recovered/Not Resolved]
  - Skin mass [Not Recovered/Not Resolved]
  - Rash [Not Recovered/Not Resolved]
